FAERS Safety Report 8439289-0 (Version None)
Quarter: 2012Q2

REPORT INFORMATION
  Report Type: 
  Country: None (occurrence: None)
  Receive Date: 20120615
  Receipt Date: 20120611
  Transmission Date: 20120825
  Serious: Yes (Other)
  Sender: FDA-Public Use
  Company Number: PHHY2011JP33604

PATIENT
  Sex: Male
  Weight: 53 kg

DRUGS (26)
  1. AFINITOR [Suspect]
     Dosage: 5 MG, DAILY
     Route: 048
     Dates: start: 20110518, end: 20110608
  2. AFINITOR [Suspect]
     Dosage: 5 MG, DAILY
     Route: 048
     Dates: start: 20110810, end: 20110824
  3. AFINITOR [Suspect]
     Dosage: 5 MG, DAILY
     Dates: start: 20120104, end: 20120118
  4. AFINITOR [Suspect]
     Dosage: 5 MG, DAILY
     Route: 048
     Dates: start: 20110831, end: 20110914
  5. LEVOTHYROXINE SODIUM [Concomitant]
     Dosage: 75 UG, UNK
  6. CILOSTAZOL [Concomitant]
     Dosage: 2 DF, UNK
     Route: 048
  7. AFINITOR [Suspect]
     Dosage: 5 MG, DAILY
     Route: 048
     Dates: start: 20110209, end: 20110213
  8. AFINITOR [Suspect]
     Dosage: 5 MG, DAILY
     Route: 048
     Dates: start: 20110105, end: 20110126
  9. AFINITOR [Suspect]
     Dosage: 5 MG, DAILY
     Dates: start: 20111012, end: 20111026
  10. LEVOTHYROXINE SODIUM [Concomitant]
     Dosage: 50 UG, UNK
     Route: 048
  11. ASPIRIN [Concomitant]
     Dosage: 1 DF, UNK
     Route: 048
  12. AFINITOR [Suspect]
     Indication: METASTATIC RENAL CELL CARCINOMA
     Dosage: 10 MG, DAILY
     Route: 048
     Dates: start: 20101208, end: 20101219
  13. AFINITOR [Suspect]
     Dosage: 5 MG, DAILY
     Route: 048
     Dates: start: 20110615, end: 20110628
  14. AFINITOR [Suspect]
     Dosage: 5 MG, DAILY
     Route: 048
     Dates: start: 20110713, end: 20110803
  15. CARNACULIN [Concomitant]
     Dosage: 3 DF, UNK
     Route: 048
  16. AFINITOR [Suspect]
     Dosage: 5 MG, DAILY
     Dates: start: 20111102, end: 20111116
  17. LEVOTHYROXINE SODIUM [Concomitant]
     Dosage: 25 UG, UNK
     Route: 048
  18. SELBEX [Concomitant]
     Indication: PROPHYLAXIS
     Dosage: 3 DF, UNK
     Route: 048
  19. AMLODIPINE [Concomitant]
     Dosage: 1 DF, UNK
     Route: 048
  20. AFINITOR [Suspect]
     Dosage: 5 MG, DAILY
     Route: 048
     Dates: start: 20110215, end: 20110305
  21. AFINITOR [Suspect]
     Dosage: 5 MG, DAILY
     Route: 048
     Dates: start: 20110921, end: 20111005
  22. AFINITOR [Suspect]
     Dosage: 5 MG, DAILY
     Dates: start: 20111123, end: 20111207
  23. AFINITOR [Suspect]
     Dosage: 5 MG, DAILY
     Dates: start: 20111214, end: 20111228
  24. DIOVAN [Concomitant]
     Dosage: 80 MG, UNK
     Route: 048
  25. TENORMIN [Concomitant]
     Dosage: 1 DF, UNK
     Route: 048
  26. ALLOPURINOL [Concomitant]
     Dosage: 1 DF, UNK
     Route: 048

REACTIONS (5)
  - PYREXIA [None]
  - RENAL IMPAIRMENT [None]
  - PNEUMONITIS [None]
  - AMYLASE INCREASED [None]
  - DIARRHOEA [None]
